FAERS Safety Report 13052981 (Version 2)
Quarter: 2024Q1

REPORT INFORMATION
  Report Type: Report from Study
  Country: US (occurrence: US)
  Receive Date: 20161222
  Receipt Date: 20240131
  Transmission Date: 20240410
  Serious: No
  Sender: FDA-Public Use
  Company Number: US-AMGEN-USASL2016176860

PATIENT
  Sex: Female

DRUGS (1)
  1. ENBREL [Suspect]
     Active Substance: ETANERCEPT
     Indication: Rheumatoid arthritis
     Dosage: UNK, QWK
     Route: 065

REACTIONS (5)
  - Therapeutic response decreased [Unknown]
  - Product dose omission issue [Unknown]
  - Joint swelling [Unknown]
  - Memory impairment [Unknown]
  - Product use issue [Unknown]
